FAERS Safety Report 8422426-1 (Version None)
Quarter: 2012Q2

REPORT INFORMATION
  Report Type: 
  Country: None (occurrence: None)
  Receive Date: 20120608
  Receipt Date: 20120601
  Transmission Date: 20120825
  Serious: Yes (Hospitalization)
  Sender: FDA-Public Use
  Company Number: FR-PFIZER INC-2012131949

PATIENT
  Age: 16 Year
  Sex: Male

DRUGS (4)
  1. PIPERACILLIN AND TAZOBACTAM [Suspect]
     Indication: LUNG DISORDER
     Dosage: 4 G, 3X/DAY
     Route: 042
     Dates: start: 20120401, end: 20120409
  2. ZITHROMAX [Suspect]
     Indication: LUNG DISORDER
     Dosage: 500 MG, 1X/DAY
     Route: 048
     Dates: start: 20120328, end: 20120328
  3. ZITHROMAX [Suspect]
     Dosage: 250 MG, 1X/DAY
     Route: 048
     Dates: start: 20120329, end: 20120409
  4. ROCEPHIN [Concomitant]
     Indication: LUNG DISORDER
     Dosage: 2 G
     Dates: start: 20120328, end: 20120330

REACTIONS (1)
  - CYTOLYTIC HEPATITIS [None]
